FAERS Safety Report 17297051 (Version 1)
Quarter: 2020Q1

REPORT INFORMATION
  Report Type: Spontaneous
  Country: CA (occurrence: CA)
  Receive Date: 20200121
  Receipt Date: 20200121
  Transmission Date: 20200409
  Serious: Yes (Other)
  Sender: FDA-Public Use
  Company Number: CA-TEVA-2019-CA-1099335

PATIENT
  Age: 54 Year
  Sex: Male
  Weight: 83.99 kg

DRUGS (1)
  1. TEVA- EFAVIRENZ W/ EMTRICITABINE W/ TENOFOVIR [Suspect]
     Active Substance: EFAVIRENZ\EMTRICITABINE\TENOFOVIR DISOPROXIL FUMARATE

REACTIONS (6)
  - Malaise [Unknown]
  - Fatigue [Unknown]
  - Abnormal dreams [Unknown]
  - Dizziness [Unknown]
  - Insomnia [Unknown]
  - Nausea [Unknown]
